FAERS Safety Report 14860536 (Version 1)
Quarter: 2018Q2

REPORT INFORMATION
  Report Type: Spontaneous
  Country: CN (occurrence: CN)
  Receive Date: 20180508
  Receipt Date: 20180508
  Transmission Date: 20180711
  Serious: Yes (Other)
  Sender: FDA-Public Use
  Company Number: CN-PFIZER INC-2018184591

PATIENT
  Age: 69 Year
  Sex: Male
  Weight: 65 kg

DRUGS (2)
  1. LIPITOR [Suspect]
     Active Substance: ATORVASTATIN CALCIUM
     Indication: DYSLIPIDAEMIA
     Dosage: 20 G, 1X/DAY
     Route: 048
     Dates: start: 20180207, end: 20180224
  2. LIPITOR [Suspect]
     Active Substance: ATORVASTATIN CALCIUM
     Indication: PROPHYLAXIS

REACTIONS (1)
  - Blood creatine phosphokinase MB increased [Recovering/Resolving]

NARRATIVE: CASE EVENT DATE: 20180213
